FAERS Safety Report 10494293 (Version 2)
Quarter: 2014Q4

REPORT INFORMATION
  Report Type: Spontaneous
  Country: US (occurrence: US)
  Receive Date: 20141003
  Receipt Date: 20141205
  Transmission Date: 20150528
  Serious: Yes (Death)
  Sender: FDA-Public Use
  Company Number: US-ROCHE-1468878

PATIENT
  Age: 80 Year
  Sex: Female

DRUGS (2)
  1. CHLORAMBUCIL [Concomitant]
     Active Substance: CHLORAMBUCIL
  2. GAZYVA [Suspect]
     Active Substance: OBINUTUZUMAB
     Indication: CHRONIC LYMPHOCYTIC LEUKAEMIA
     Dosage: TRADITIONAL DOSE
     Route: 065

REACTIONS (2)
  - Cytomegalovirus infection [Unknown]
  - Death [Fatal]

NARRATIVE: CASE EVENT DATE: 2014
